FAERS Safety Report 6897908-4 (Version None)
Quarter: 2010Q3

REPORT INFORMATION
  Report Type: 
  Country: None (occurrence: None)
  Receive Date: 20100802
  Receipt Date: 20070807
  Transmission Date: 20110219
  Serious: No
  Sender: FDA-Public Use
  Company Number: US-PFIZER INC-2007067069

PATIENT

DRUGS (10)
  1. LYRICA [Suspect]
     Indication: FIBROMYALGIA
  2. CARDIZEM [Interacting]
  3. REQUIP [Interacting]
     Indication: RESTLESS LEGS SYNDROME
  4. PROZAC [Interacting]
  5. WELLBUTRIN [Interacting]
  6. KLONOPIN [Interacting]
  7. VESICARE [Interacting]
  8. PROVIGIL [Interacting]
  9. ACIPHEX [Interacting]
  10. ZELNORM [Interacting]

REACTIONS (2)
  - DRUG INTERACTION [None]
  - PAIN [None]
